FAERS Safety Report 9504599 (Version 1)
Quarter: 2013Q3

REPORT INFORMATION
  Report Type: Spontaneous
  Country: FR (occurrence: FR)
  Receive Date: 20130906
  Receipt Date: 20130906
  Transmission Date: 20140515
  Serious: Yes (Other)
  Sender: FDA-Public Use
  Company Number: FR-ELI_LILLY_AND_COMPANY-FR201308009833

PATIENT
  Sex: Male

DRUGS (2)
  1. ALIMTA [Suspect]
     Route: 042
  2. CISPLATINE [Concomitant]

REACTIONS (2)
  - Hepatocellular injury [Recovered/Resolved]
  - Anaemia [Recovered/Resolved]
